FAERS Safety Report 4583715-4 (Version None)
Quarter: 2005Q1

REPORT INFORMATION
  Report Type: 
  Country: None (occurrence: None)
  Receive Date: 20050125
  Receipt Date: 20041007
  Transmission Date: 20050727
  Serious: No
  Sender: FDA-Public Use
  Company Number: USA041080497

PATIENT
  Age: 82 Year
  Sex: Female
  Weight: 45 kg

DRUGS (1)
  1. FORTEO [Suspect]

REACTIONS (4)
  - DIZZINESS [None]
  - LIMB DISCOMFORT [None]
  - MUSCLE SPASMS [None]
  - TREMOR [None]
